FAERS Safety Report 6148476-6 (Version None)
Quarter: 2009Q2

REPORT INFORMATION
  Report Type: 
  Country: None (occurrence: None)
  Receive Date: 20090408
  Receipt Date: 20090327
  Transmission Date: 20091009
  Serious: Yes (Other)
  Sender: FDA-Public Use
  Company Number: PHHY2009CA11786

PATIENT
  Sex: Female

DRUGS (1)
  1. DESFERAL [Suspect]

REACTIONS (1)
  - INJECTION SITE OEDEMA [None]
